FAERS Safety Report 16486933 (Version 1)
Quarter: 2019Q3

REPORT INFORMATION
  Report Type: Spontaneous
  Country: US (occurrence: US)
  Receive Date: 20190625
  Receipt Date: 20190625
  Transmission Date: 20191004
  Serious: Yes (Other)
  Sender: FDA-Public Use
  Company Number: None

PATIENT
  Age: 81 Year
  Sex: Female
  Weight: 60.75 kg

DRUGS (1)
  1. TIMOLOL MALEATE. [Suspect]
     Active Substance: TIMOLOL MALEATE
     Indication: INTRAOCULAR PRESSURE INCREASED
     Route: 047
     Dates: start: 20190416, end: 20190514

REACTIONS (10)
  - Dizziness [None]
  - Balance disorder [None]
  - Muscular weakness [None]
  - Heart rate decreased [None]
  - Vertigo [None]
  - Headache [None]
  - Hypotension [None]
  - Malaise [None]
  - Influenza like illness [None]
  - Memory impairment [None]

NARRATIVE: CASE EVENT DATE: 20190416
